FAERS Safety Report 7900380-6 (Version None)
Quarter: 2011Q4

REPORT INFORMATION
  Report Type: 
  Country: None (occurrence: None)
  Receive Date: 20111108
  Receipt Date: 20111105
  Transmission Date: 20120403
  Serious: No
  Sender: FDA-Public Use
  Company Number: US-PFIZER INC-2011270845

PATIENT
  Sex: Female
  Weight: 63.492 kg

DRUGS (1)
  1. IBUPROFEN (ADVIL) [Suspect]
     Indication: ARTHRITIS
     Dosage: UNK
     Route: 048
     Dates: end: 20111105

REACTIONS (2)
  - ORAL DISCOMFORT [None]
  - EXPIRED DRUG ADMINISTERED [None]
